FAERS Safety Report 8649446 (Version 3)
Quarter: 2012Q4

REPORT INFORMATION
  Report Type: 
  Country: US (occurrence: US)
  Receive Date: 20120705
  Receipt Date: 20121011
  Transmission Date: 20130627
  Serious: Yes (Death, Other)
  Sender: FDA-Public Use
  Company Number: US-JNJFOC-20120614736

PATIENT
  Age: 39 None
  Sex: Male

DRUGS (6)
  1. INVEGA SUSTENNA [Suspect]
     Indication: SCHIZOPHRENIA
     Route: 030
  2. INVEGA SUSTENNA [Suspect]
     Indication: SCHIZOPHRENIA
     Dosage: on day 1
     Route: 030
     Dates: start: 201202, end: 201202
  3. INVEGA SUSTENNA [Suspect]
     Indication: SCHIZOPHRENIA
     Dosage: on day 8
     Route: 030
     Dates: start: 201202, end: 201202
  4. GEODON [Concomitant]
     Indication: ABNORMAL BEHAVIOUR
     Route: 030
     Dates: start: 201202, end: 201202
  5. GEODON [Concomitant]
     Indication: SCHIZOPHRENIA
     Route: 030
     Dates: start: 201202, end: 201202
  6. NAVANE [Concomitant]
     Route: 048

REACTIONS (6)
  - Completed suicide [Fatal]
  - Depression [Not Recovered/Not Resolved]
  - Anxiety [Not Recovered/Not Resolved]
  - Decreased appetite [Not Recovered/Not Resolved]
  - Panic disorder [Not Recovered/Not Resolved]
  - Therapy cessation [Not Recovered/Not Resolved]
